FAERS Safety Report 11183536 (Version 1)
Quarter: 2015Q2

REPORT INFORMATION
  Report Type: Spontaneous
  Country: FR (occurrence: FR)
  Receive Date: 20150612
  Receipt Date: 20150612
  Transmission Date: 20150821
  Serious: Yes (Other)
  Sender: FDA-Public Use
  Company Number: FR-CIPLA LTD.-2015FR04536

PATIENT

DRUGS (5)
  1. DOLUTEGRAVIR [Suspect]
     Active Substance: DOLUTEGRAVIR
     Route: 064
  2. TENOFOVIR DISOPROXIL FUMARATE [Suspect]
     Active Substance: TENOFOVIR DISOPROXIL FUMARATE
     Route: 064
  3. EMTRICITABINE [Suspect]
     Active Substance: EMTRICITABINE
     Route: 064
  4. RITONAVIR. [Suspect]
     Active Substance: RITONAVIR
     Route: 064
  5. ATAZANAVIR [Suspect]
     Active Substance: ATAZANAVIR
     Route: 064

REACTIONS (3)
  - Premature baby [Unknown]
  - Drug interaction [Unknown]
  - Foetal exposure during pregnancy [None]
